FAERS Safety Report 14532918 (Version 2)
Quarter: 2020Q3

REPORT INFORMATION
  Report Type: Report from Study
  Country: FR (occurrence: FR)
  Receive Date: 20180215
  Receipt Date: 20180220
  Transmission Date: 20201104
  Serious: Yes (Hospitalization)
  Sender: FDA-Public Use
  Company Number: FR-ASTRAZENECA-2018SE16221

PATIENT
  Age: 66 Year
  Sex: Male

DRUGS (2)
  1. MEDI4736 [Suspect]
     Active Substance: DURVALUMAB
     Indication: NEOPLASM
     Route: 042
  2. MEDI?9197. [Suspect]
     Active Substance: MEDI-9197
     Indication: NEOPLASM
     Dosage: EVERY FOUR WEEKS
     Route: 036
     Dates: start: 20180206

REACTIONS (1)
  - Influenza like illness [Recovered/Resolved]

NARRATIVE: CASE EVENT DATE: 20180207
